FAERS Safety Report 7939375-5 (Version None)
Quarter: 2011Q4

REPORT INFORMATION
  Report Type: 
  Country: None (occurrence: None)
  Receive Date: 20111125
  Receipt Date: 20111115
  Transmission Date: 20120403
  Serious: Yes (Other)
  Sender: FDA-Public Use
  Company Number: US-BAYER-201039041NA

PATIENT
  Age: 52 Year
  Sex: Female
  Weight: 77.098 kg

DRUGS (13)
  1. GLUCOSAMINE W/CHONDROITIN SULFATE [Concomitant]
  2. ALLERX [CHLORPHENAM MAL,HYOSCINE METHONITR,PSEUDOEPH HCL] [Concomitant]
  3. HYDROCODONE BITARTRATE AND ACETAMINOPHEN [Concomitant]
     Dosage: 5 MG, UNK
  4. YAZ [Suspect]
     Indication: PREMENSTRUAL SYNDROME
     Route: 048
     Dates: start: 20070401
  5. VITAMIN E [Concomitant]
     Indication: PREMENSTRUAL SYNDROME
  6. LORTAB [Concomitant]
     Indication: PREMENSTRUAL SYNDROME
  7. TEA, GREEN [Concomitant]
  8. VITAMIN B COMPLEX CAP [Concomitant]
  9. FELDENE [Concomitant]
  10. EVENING PRIMROSE OIL [Concomitant]
     Indication: PREMENSTRUAL SYNDROME
  11. FLAXSEED OIL [Concomitant]
     Indication: PREMENSTRUAL SYNDROME
  12. PROMETHAZINE [Concomitant]
     Dosage: 25 MG, UNK
  13. PIROXICAM [Concomitant]
     Dosage: 10 MG, UNK

REACTIONS (4)
  - BILIARY DYSKINESIA [None]
  - GALLBLADDER NON-FUNCTIONING [None]
  - CHOLECYSTITIS CHRONIC [None]
  - GALLBLADDER DISORDER [None]
